FAERS Safety Report 5292463-7 (Version None)
Quarter: 2007Q2

REPORT INFORMATION
  Report Type: 
  Country: None (occurrence: None)
  Receive Date: 20070410
  Receipt Date: 20070329
  Transmission Date: 20071010
  Serious: Yes (Death, Life-Threatening, Other)
  Sender: FDA-Public Use
  Company Number: JP-PFIZER INC-2007019568

PATIENT
  Sex: Male
  Weight: 84 kg

DRUGS (9)
  1. ZYVOX [Suspect]
     Indication: STAPHYLOCOCCAL SEPSIS
     Route: 042
     Dates: start: 20070112, end: 20070209
  2. MAXIPIME [Concomitant]
     Route: 042
     Dates: start: 20070102, end: 20070113
  3. GAMIMUNE N 5% [Concomitant]
     Route: 042
     Dates: start: 20070104, end: 20070106
  4. PASIL [Concomitant]
     Route: 042
     Dates: start: 20061225, end: 20070205
  5. MEROPEN [Concomitant]
     Route: 042
     Dates: start: 20070113, end: 20070116
  6. GRAN [Concomitant]
     Route: 042
     Dates: start: 20070104, end: 20070116
  7. LASIX [Concomitant]
     Route: 042
     Dates: start: 20070104, end: 20070124
  8. SOLITA-T1 INJECTION [Concomitant]
     Route: 042
     Dates: start: 20070113, end: 20070124
  9. SOLITA-T3 INJECTION [Concomitant]
     Route: 042
     Dates: start: 20070113, end: 20070123

REACTIONS (4)
  - DEPRESSED LEVEL OF CONSCIOUSNESS [None]
  - PLATELET COUNT DECREASED [None]
  - STAPHYLOCOCCAL SEPSIS [None]
  - WHITE BLOOD CELL COUNT DECREASED [None]
